FAERS Safety Report 15368281 (Version 2)
Quarter: 2018Q3

REPORT INFORMATION
  Report Type: Report from Study
  Country: US (occurrence: US)
  Receive Date: 20180910
  Receipt Date: 20180913
  Transmission Date: 20181010
  Serious: Yes (Hospitalization)
  Sender: FDA-Public Use
  Company Number: US-ACTELION-A-NJ2018-178261

PATIENT
  Age: 57 Year
  Sex: Female

DRUGS (44)
  1. ANORO ELLIPTA [Concomitant]
     Active Substance: UMECLIDINIUM BROMIDE\VILANTEROL TRIFENATATE
  2. COMBIVENT [Concomitant]
     Active Substance: ALBUTEROL SULFATE\IPRATROPIUM BROMIDE
  3. MYRBETRIQ [Concomitant]
     Active Substance: MIRABEGRON
  4. GABAPENTIN. [Concomitant]
     Active Substance: GABAPENTIN
  5. BUDESONIDE. [Concomitant]
     Active Substance: BUDESONIDE
  6. RESTASIS [Concomitant]
     Active Substance: CYCLOSPORINE
  7. FLUOCINOLONE ACETATE [Concomitant]
     Active Substance: FLUOCINOLONE ACETONIDE
  8. METRONIDAZOLE. [Concomitant]
     Active Substance: METRONIDAZOLE
  9. SMZ?TMP [Concomitant]
     Active Substance: SULFAMETHOXAZOLE\TRIMETHOPRIM
  10. CEPHALEXIN. [Concomitant]
     Active Substance: CEPHALEXIN
  11. VALACYCLOVIR [Concomitant]
     Active Substance: VALACYCLOVIR HYDROCHLORIDE
  12. MOXIFLOXACIN. [Concomitant]
     Active Substance: MOXIFLOXACIN
  13. LYRICA [Concomitant]
     Active Substance: PREGABALIN
  14. RITUXAN [Concomitant]
     Active Substance: RITUXIMAB
  15. VITAMIN D [Concomitant]
     Active Substance: CHOLECALCIFEROL
  16. ARNUITY ELLIPTA [Concomitant]
     Active Substance: FLUTICASONE FUROATE
  17. PROAIR HFA [Concomitant]
     Active Substance: ALBUTEROL SULFATE
  18. NEOSPORIN [Concomitant]
     Active Substance: BACITRACIN ZINC\NEOMYCIN SULFATE\POLYMYXIN B SULFATE
  19. ALBUTEROL. [Concomitant]
     Active Substance: ALBUTEROL
  20. CYCLOBENZAPRIN [Concomitant]
     Active Substance: CYCLOBENZAPRINE
  21. FUROSEMIDE. [Concomitant]
     Active Substance: FUROSEMIDE
  22. OXYCODONE/APAP [Concomitant]
     Active Substance: ACETAMINOPHEN\OXYCODONE HYDROCHLORIDE
  23. MELOXICAM. [Concomitant]
     Active Substance: MELOXICAM
  24. DIAZEPAM. [Concomitant]
     Active Substance: DIAZEPAM
  25. ATORVASTATIN [Concomitant]
     Active Substance: ATORVASTATIN
  26. ESTRADIOL. [Concomitant]
     Active Substance: ESTRADIOL
  27. AZITHROMYCIN ANHYDROUS. [Concomitant]
     Active Substance: AZITHROMYCIN ANHYDROUS
  28. TRIAMCINOLONE [Concomitant]
     Active Substance: TRIAMCINOLONE
  29. HYDROXYCHLOROQUINE [Concomitant]
     Active Substance: HYDROXYCHLOROQUINE
  30. EPINEPHRINE. [Concomitant]
     Active Substance: EPINEPHRINE
  31. AMOXICILLIN AND CLAVULANATE POTASSIUM [Concomitant]
     Active Substance: AMOXICILLIN\CLAVULANATE POTASSIUM
  32. URIBEL [Concomitant]
     Active Substance: HYOSCYAMINE SULFATE\METHENAMINE\METHYLENE BLUE\PHENYL SALICYLATE\SODIUM PHOSPHATE, MONOBASIC, MONOHYDRATE
  33. OPSUMIT [Suspect]
     Active Substance: MACITENTAN
     Indication: PULMONARY ARTERIAL HYPERTENSION
     Dosage: 10 MG, QD
     Route: 048
     Dates: start: 20160407
  34. ALENDRONATE [Concomitant]
     Active Substance: ALENDRONATE SODIUM
  35. MYCOPHENOLATE [Concomitant]
     Active Substance: MYCOPHENOLIC ACID
  36. CIPROFLOXACIN. [Concomitant]
     Active Substance: CIPROFLOXACIN
  37. NADOLOL. [Concomitant]
     Active Substance: NADOLOL
  38. PREDNISONE. [Concomitant]
     Active Substance: PREDNISONE
  39. OXYBUTYNIN. [Concomitant]
     Active Substance: OXYBUTYNIN CHLORIDE
  40. MONTELUKAST [Concomitant]
     Active Substance: MONTELUKAST SODIUM
  41. BUDESONIDE. [Concomitant]
     Active Substance: BUDESONIDE
  42. FLUCONAZOLE. [Concomitant]
     Active Substance: FLUCONAZOLE
  43. CIPRODEX [Concomitant]
     Active Substance: CIPROFLOXACIN HYDROCHLORIDE\DEXAMETHASONE
  44. MUPIROCIN. [Concomitant]
     Active Substance: MUPIROCIN

REACTIONS (1)
  - Shoulder arthroplasty [Recovered/Resolved]
